FAERS Safety Report 7301499-3 (Version None)
Quarter: 2011Q1

REPORT INFORMATION
  Report Type: 
  Country: None (occurrence: None)
  Receive Date: 20110218
  Receipt Date: 20100813
  Transmission Date: 20110831
  Serious: No
  Sender: FDA-Public Use
  Company Number: US-BRISTOL-MYERS SQUIBB COMPANY-15239981

PATIENT

DRUGS (1)
  1. KENALOG [Suspect]

REACTIONS (1)
  - MEDICATION ERROR [None]
